FAERS Safety Report 5533885-6 (Version None)
Quarter: 2007Q4

REPORT INFORMATION
  Report Type: 
  Country: None (occurrence: None)
  Receive Date: 20071129
  Receipt Date: 20071119
  Transmission Date: 20080405
  Serious: Yes (Hospitalization)
  Sender: FDA-Public Use
  Company Number: 2007-05216

PATIENT
  Age: 57 Year
  Sex: Female

DRUGS (3)
  1. FIORINAL [Suspect]
     Indication: ACUTE CORONARY SYNDROME
     Dosage: ORAL
     Route: 048
     Dates: start: 20070101, end: 20070101
  2. CLOPIDOGREL [Suspect]
     Indication: ACUTE CORONARY SYNDROME
     Dates: start: 20070101, end: 20070101
  3. ENOXAPARIN SODIUM [Suspect]
     Indication: ACUTE CORONARY SYNDROME
     Dosage: 1 MG/KG,
     Dates: start: 20070101, end: 20070101

REACTIONS (2)
  - PITUITARY HAEMORRHAGE [None]
  - TUMOUR HAEMORRHAGE [None]
